FAERS Safety Report 9913173 (Version 3)
Quarter: 2014Q2

REPORT INFORMATION
  Report Type: Spontaneous
  Country: US (occurrence: US)
  Receive Date: 20140220
  Receipt Date: 20140404
  Transmission Date: 20141212
  Serious: No
  Sender: FDA-Public Use
  Company Number: US-009507513-1402USA004731

PATIENT
  Age: 60 Year
  Sex: Female

DRUGS (1)
  1. DULERA [Suspect]
     Indication: ASTHMA
     Dosage: 1 DF, BID, 1 PUFF
     Route: 055
     Dates: start: 20140209

REACTIONS (8)
  - Respiratory tract congestion [Unknown]
  - Throat irritation [Unknown]
  - Drug ineffective [Not Recovered/Not Resolved]
  - Incorrect dosage administered [Unknown]
  - Underdose [Unknown]
  - Incorrect route of drug administration [Unknown]
  - Product quality issue [Unknown]
  - Malaise [Unknown]
